FAERS Safety Report 24969859 (Version 1)
Quarter: 2025Q1

REPORT INFORMATION
  Report Type: Report from Study
  Country: TH (occurrence: TH)
  Receive Date: 20250214
  Receipt Date: 20250214
  Transmission Date: 20250409
  Serious: Yes (Other)
  Sender: ALEXION PHARMACEUTICALS
  Company Number: TH-AstraZeneca-CH-00804641A

PATIENT

DRUGS (2)
  1. OSIMERTINIB [Suspect]
     Active Substance: OSIMERTINIB
     Indication: Non-small cell lung cancer
     Dosage: 80 MILLIGRAM, QD
  2. OSIMERTINIB [Suspect]
     Active Substance: OSIMERTINIB
     Indication: EGFR gene mutation

REACTIONS (8)
  - Drug hypersensitivity [Unknown]
  - Arrhythmia [Unknown]
  - Syncope [Unknown]
  - Cardiotoxicity [Unknown]
  - Pulmonary mass [Unknown]
  - Hypotension [Unknown]
  - Lung disorder [Unknown]
  - Bedridden [Unknown]
